FAERS Safety Report 25955807 (Version 3)
Quarter: 2025Q4

REPORT INFORMATION
  Report Type: Report from Study
  Country: US (occurrence: US)
  Receive Date: 20251024
  Receipt Date: 20251201
  Transmission Date: 20260118
  Serious: Yes (Death, Other)
  Sender: ACADIA PHARMACEUTICALS
  Company Number: US-ACADIA PHARMACEUTICALS INC.-ACA-2025-PIM-011508

PATIENT
  Sex: Male

DRUGS (11)
  1. NUPLAZID [Suspect]
     Active Substance: PIMAVANSERIN TARTRATE
     Indication: Parkinson^s disease psychosis
     Dosage: 34 MILLIGRAM, QD
     Route: 048
     Dates: start: 20240309, end: 20251013
  2. FOLIC ACID [Concomitant]
     Active Substance: FOLIC ACID
  3. MYOBLOC [Concomitant]
     Active Substance: RIMABOTULINUMTOXINB
  4. FLORINEF ACETATE [Concomitant]
     Active Substance: FLUDROCORTISONE ACETATE
  5. MIDODRINE [Concomitant]
     Active Substance: MIDODRINE
  6. FAMOTIDINE [Concomitant]
     Active Substance: FAMOTIDINE
  7. CARBIDOPA\LEVODOPA [Concomitant]
     Active Substance: CARBIDOPA\LEVODOPA
  8. AMANTADINE [Concomitant]
     Active Substance: AMANTADINE
  9. GABAPENTIN [Concomitant]
     Active Substance: GABAPENTIN
  10. MORPHINE [Concomitant]
     Active Substance: MORPHINE
     Dosage: PUMP
  11. MORNIFLUMATE [Concomitant]
     Active Substance: MORNIFLUMATE

REACTIONS (2)
  - Cardio-respiratory arrest [Fatal]
  - Parkinson^s disease [Fatal]
